FAERS Safety Report 19088181 (Version 2)
Quarter: 2021Q2

REPORT INFORMATION
  Report Type: Report from Study
  Country: US (occurrence: US)
  Receive Date: 20210402
  Receipt Date: 20210409
  Transmission Date: 20210717
  Serious: Yes (Other)
  Sender: FDA-Public Use
  Company Number: US-VIIV HEALTHCARE LIMITED-US2021GSK071474

PATIENT
  Sex: Female

DRUGS (4)
  1. CEPHALEXIN. [Concomitant]
     Active Substance: CEPHALEXIN
     Route: 064
  2. DOLUTEGRAVIR [Suspect]
     Active Substance: DOLUTEGRAVIR
     Indication: HIV INFECTION
     Dosage: 1 TAB./CAP.
     Route: 064
     Dates: start: 20200430
  3. NITROFURANTOIN. [Concomitant]
     Active Substance: NITROFURANTOIN
     Route: 064
  4. FOLATE SUPPLEMENT [Concomitant]
     Route: 064

REACTIONS (2)
  - Foetal anaemia [Recovered/Resolved]
  - Hydrops foetalis [Recovered/Resolved]

NARRATIVE: CASE EVENT DATE: 20200708
